FAERS Safety Report 24273636 (Version 1)
Quarter: 2024Q3

REPORT INFORMATION
  Report Type: Spontaneous
  Country: US (occurrence: US)
  Receive Date: 20240902
  Receipt Date: 20240902
  Transmission Date: 20241016
  Serious: No
  Sender: ASTELLAS
  Company Number: US-ASTELLAS-2024US002269

PATIENT
  Age: 96 Year
  Sex: Male

DRUGS (2)
  1. PADCEV [Suspect]
     Active Substance: ENFORTUMAB VEDOTIN-EJFV
     Indication: Transitional cell carcinoma
     Dosage: 67 MG, CYCLIC (1 AND 8 OF EVERY 21 DAY CYCLE)
     Route: 042
     Dates: start: 20231215
  2. PADCEV [Suspect]
     Active Substance: ENFORTUMAB VEDOTIN-EJFV
     Dosage: 67 MG, CYCLIC (1, 8 OF EVERY 21 DAY CYCLE)
     Route: 065
     Dates: start: 20240104

REACTIONS (2)
  - Malaise [Recovered/Resolved]
  - Dehydration [Unknown]

NARRATIVE: CASE EVENT DATE: 20231222
